FAERS Safety Report 16825528 (Version 1)
Quarter: 2019Q3

REPORT INFORMATION
  Report Type: Spontaneous
  Country: GB (occurrence: GB)
  Receive Date: 20190919
  Receipt Date: 20190919
  Transmission Date: 20191005
  Serious: Yes (Hospitalization, Congenital Anomaly, Other)
  Sender: FDA-Public Use
  Company Number: GB-TEVA-2019-GB-1109134

PATIENT
  Sex: Male
  Weight: 3.96 kg

DRUGS (2)
  1. ONDANSETRON [Suspect]
     Active Substance: ONDANSETRON
     Indication: ANTIEMETIC SUPPORTIVE CARE
     Dosage: DURING FIRST TRIMESTER, REDUCED TO ONCE DAILY FOR REMAINDER OF PREGNANCY. 1 DAYS
     Route: 064
     Dates: start: 20181123, end: 20190629
  2. ANTIBIOTICS [Concomitant]
     Active Substance: UNSPECIFIED INGREDIENT
     Indication: PAIN
     Dosage: AT 5 MONTHS PREGNANCY. POSSIBLY AMOXICILLIN.
     Route: 064

REACTIONS (3)
  - Hypertension [Unknown]
  - Foetal exposure during pregnancy [Unknown]
  - Coarctation of the aorta [Recovered/Resolved with Sequelae]

NARRATIVE: CASE EVENT DATE: 20190629
